FAERS Safety Report 18539867 (Version 6)
Quarter: 2023Q4

REPORT INFORMATION
  Report Type: Report from Study
  Country: IT (occurrence: IT)
  Receive Date: 20201124
  Receipt Date: 20231203
  Transmission Date: 20240110
  Serious: Yes (Other)
  Sender: FDA-Public Use
  Company Number: NVSC2020IT312493

PATIENT
  Age: 46 Year
  Sex: Male
  Weight: 98 kg

DRUGS (3)
  1. PROMACTA [Suspect]
     Active Substance: ELTROMBOPAG OLAMINE
     Indication: Immune thrombocytopenia
     Dosage: 50 MG, QD
     Route: 048
     Dates: start: 20190418, end: 20191004
  2. PROMACTA [Suspect]
     Active Substance: ELTROMBOPAG OLAMINE
     Dosage: 100 MG, QOD
     Route: 048
     Dates: start: 20191005
  3. NETILMICIN [Concomitant]
     Active Substance: NETILMICIN
     Indication: Conjunctivitis
     Dosage: UNK
     Route: 065
     Dates: start: 20191003, end: 20191010

REACTIONS (1)
  - Intentional product misuse [Recovered/Resolved]

NARRATIVE: CASE EVENT DATE: 20191005
